FAERS Safety Report 8141049-5 (Version None)
Quarter: 2012Q1

REPORT INFORMATION
  Report Type: 
  Country: None (occurrence: None)
  Receive Date: 20120216
  Receipt Date: 20120209
  Transmission Date: 20120608
  Serious: Yes (Other)
  Sender: FDA-Public Use
  Company Number: AT-ABBOTT-12P-009-0903344-00

PATIENT
  Sex: Male
  Weight: 108 kg

DRUGS (2)
  1. HUMIRA [Suspect]
     Indication: PSORIASIS
     Route: 058
     Dates: start: 20080101, end: 20120101
  2. GASTROLOC [Concomitant]
     Indication: ABDOMINAL PAIN UPPER

REACTIONS (4)
  - LEUKOPENIA [None]
  - BLOOD LACTATE DEHYDROGENASE INCREASED [None]
  - GENERALISED OEDEMA [None]
  - BLOOD DISORDER [None]
